FAERS Safety Report 20906010 (Version 1)
Quarter: 2022Q2

REPORT INFORMATION
  Report Type: Report from Study
  Country: US (occurrence: US)
  Receive Date: 20220602
  Receipt Date: 20220602
  Transmission Date: 20220721
  Serious: Yes (Death, Life-Threatening, Hospitalization)
  Sender: FDA-Public Use
  Company Number: US-ELI_LILLY_AND_COMPANY-US202205011847

PATIENT
  Sex: Male

DRUGS (2)
  1. HUMULIN R U-500 [Suspect]
     Active Substance: INSULIN HUMAN
     Indication: Product used for unknown indication
     Dosage: 150 U, TID
     Route: 058
     Dates: start: 20220505
  2. BASAGLAR [Suspect]
     Active Substance: INSULIN GLARGINE
     Indication: Product used for unknown indication
     Dosage: 20 U, DAILY
     Route: 058
     Dates: start: 20220211

REACTIONS (6)
  - Death [Fatal]
  - Cardiac arrest [Unknown]
  - Brain injury [Unknown]
  - Coma [Unknown]
  - Pain in extremity [Unknown]
  - Dyspnoea [Unknown]
